FAERS Safety Report 9354860 (Version 1)
Quarter: 2013Q2

REPORT INFORMATION
  Report Type: Spontaneous
  Country: MY (occurrence: MY)
  Receive Date: 20130619
  Receipt Date: 20130619
  Transmission Date: 20140414
  Serious: Yes (Death, Other)
  Sender: FDA-Public Use
  Company Number: MY-ROXANE LABORATORIES, INC.-2013-RO-00953RO

PATIENT
  Age: 81 Year
  Sex: Male

DRUGS (2)
  1. CLOPIDOGREL [Suspect]
     Indication: ANTIPLATELET THERAPY
     Dosage: 75 MG
  2. ASPIRIN [Suspect]
     Indication: ANTIPLATELET THERAPY
     Dosage: 300 MG

REACTIONS (4)
  - Myocardial infarction [Fatal]
  - Ageusia [Unknown]
  - Quality of life decreased [Unknown]
  - Weight decreased [Unknown]
